FAERS Safety Report 9681496 (Version 2)
Quarter: 2013Q4

REPORT INFORMATION
  Report Type: Spontaneous
  Country: DE (occurrence: DE)
  Receive Date: 20131111
  Receipt Date: 20131206
  Transmission Date: 20140711
  Serious: Yes (Other)
  Sender: FDA-Public Use
  Company Number: DE-PFIZER INC-2013317411

PATIENT
  Age: 65 Year
  Sex: Male
  Weight: 78 kg

DRUGS (5)
  1. SUTENT [Suspect]
     Indication: RENAL CELL CARCINOMA
     Dosage: 25 MG, DAILY
     Route: 048
     Dates: start: 20120917, end: 20130707
  2. MCP [Concomitant]
     Dosage: UNK
  3. LOPERAMID [Concomitant]
     Dosage: UNK
  4. VITAMIN B KOMPLEX [Concomitant]
     Dosage: UNK
  5. RISPERIDONE [Concomitant]
     Dosage: 0.5 MG, UNK

REACTIONS (4)
  - Electrocardiogram repolarisation abnormality [Unknown]
  - Disease progression [Not Recovered/Not Resolved]
  - Renal cell carcinoma [Not Recovered/Not Resolved]
  - Bundle branch block left [Unknown]
